FAERS Safety Report 13395693 (Version 1)
Quarter: 2017Q2

REPORT INFORMATION
  Report Type: Spontaneous
  Country: US (occurrence: US)
  Receive Date: 20170401
  Receipt Date: 20170401
  Transmission Date: 20170830
  Serious: No
  Sender: FDA-Public Use
  Company Number: None

PATIENT

DRUGS (8)
  1. SIMVASTATIN. [Concomitant]
     Active Substance: SIMVASTATIN
  2. PREGABALIN. [Concomitant]
     Active Substance: PREGABALIN
  3. METFORMIN [Concomitant]
     Active Substance: METFORMIN HYDROCHLORIDE
  4. VIAGRA [Suspect]
     Active Substance: SILDENAFIL CITRATE
     Dates: start: 20170331
  5. GABAPENTIN. [Concomitant]
     Active Substance: GABAPENTIN
  6. INSULIN [Concomitant]
     Active Substance: INSULIN NOS
  7. ASPIRIN. [Concomitant]
     Active Substance: ASPIRIN
  8. LOSARTAN. [Concomitant]
     Active Substance: LOSARTAN

REACTIONS (4)
  - Abdominal pain [None]
  - Abnormal faeces [None]
  - Headache [None]
  - Drug ineffective [None]

NARRATIVE: CASE EVENT DATE: 20170331
